FAERS Safety Report 4643183-0 (Version None)
Quarter: 2005Q2

REPORT INFORMATION
  Report Type: 
  Country: None (occurrence: None)
  Receive Date: 20050422
  Receipt Date: 20050408
  Transmission Date: 20051028
  Serious: Yes (Hospitalization, Disabling, Other)
  Sender: FDA-Public Use
  Company Number: 2004070397

PATIENT
  Age: 42 Year
  Sex: Male

DRUGS (4)
  1. NEURONTIN [Suspect]
     Indication: BIPOLAR DISORDER
     Dosage: 1200 MG (300 MG, 4 IN 1 D) ORAL
     Route: 048
     Dates: start: 19991119
  2. CLONAZEPAM [Suspect]
     Indication: ILL-DEFINED DISORDER
     Dosage: 2 MG (0.5 MG, 4 IN 1 D) ORAL
     Route: 048
     Dates: start: 19990213
  3. FLUOXETINE [Concomitant]
  4. LITHIUM [Concomitant]

REACTIONS (11)
  - AGGRESSION [None]
  - AGITATION [None]
  - ALCOHOL USE [None]
  - DEFORMITY [None]
  - DEPRESSION [None]
  - DRUG TOLERANCE [None]
  - OVERDOSE [None]
  - PAIN [None]
  - POLYTRAUMATISM [None]
  - STRESS AT WORK [None]
  - SUICIDE ATTEMPT [None]
